FAERS Safety Report 18871306 (Version 1)
Quarter: 2021Q1

REPORT INFORMATION
  Report Type: Spontaneous
  Country: US (occurrence: US)
  Receive Date: 20210209
  Receipt Date: 20210209
  Transmission Date: 20210420
  Serious: No
  Sender: FDA-Public Use
  Company Number: None

PATIENT
  Age: 67 Year
  Sex: Female
  Weight: 99 kg

DRUGS (22)
  1. DEXMEDETOMIDINE IV INFUSION [Concomitant]
     Dates: start: 20201108, end: 20201115
  2. HEPARIN INFUSION [Concomitant]
     Dates: start: 20201108, end: 20201115
  3. FUROSEMIDE 40MG IV ONCE [Concomitant]
     Dates: start: 20201108, end: 20201108
  4. REMDESIVIR. [Suspect]
     Active Substance: REMDESIVIR
     Indication: COVID-19 PNEUMONIA
     Dosage: ?          OTHER FREQUENCY:200MG X1, 100MG/D;?
     Route: 042
     Dates: start: 20201105, end: 20201107
  5. ACETAMINOPHEN 650MG PO Q6H PRN FEVER [Concomitant]
     Dates: start: 20201102, end: 20201105
  6. ALPRAZOLAM 0.25MG PO TID PRN ANXIETY [Concomitant]
     Dates: start: 20201104, end: 20201124
  7. LACTULOSE 20GRAMS PO Q8H [Concomitant]
     Dates: start: 20201111, end: 20201121
  8. ALBUMIN 12.5 GM IV Q12H [Concomitant]
     Dates: start: 20201112, end: 20201115
  9. ELIQUIS [Concomitant]
     Active Substance: APIXABAN
     Dates: start: 20201102, end: 20201108
  10. DEXAMETHASONE 6MG PO DAILY [Concomitant]
     Active Substance: DEXAMETHASONE
     Dates: start: 20201105, end: 20201108
  11. FAMOTIDINE 20MG IV Q12H [Concomitant]
     Dates: start: 20201103, end: 20201108
  12. LANTUS 12?14 UNITS QHS [Concomitant]
     Dates: start: 20201105, end: 20201124
  13. ATORVASTATIN 20MG QHS [Concomitant]
     Dates: start: 20201102, end: 20201108
  14. BUMETANIDE 1MG IV Q12H [Concomitant]
     Dates: start: 20201112, end: 20201115
  15. LEVAQUIN 750MG IV Q24H [Concomitant]
     Dates: start: 20201104, end: 20201107
  16. ACETAMINOPHEN 650MG PR Q6H PRN FEVER [Concomitant]
     Dates: start: 20201102, end: 20201124
  17. ACETAZOLAMIDE 250MG BID [Concomitant]
     Dates: start: 20201113, end: 20201114
  18. LISPRO SSI [Concomitant]
     Dates: start: 20201102, end: 20201124
  19. IRON SUCROSE 200MG IV DAILY [Concomitant]
     Dates: start: 20201109, end: 20201113
  20. AZTREONAM 1G IV Q8H [Concomitant]
     Dates: start: 20201108, end: 20201112
  21. HALOPERIDOL 2MG IM [Concomitant]
     Dates: start: 20201107, end: 20201107
  22. IBUPROFEN 400MG PO Q6H PRN FEVER [Concomitant]
     Dates: start: 20201105, end: 20201108

REACTIONS (15)
  - Hypoxia [None]
  - Head injury [None]
  - Somnolence [None]
  - Hypotension [None]
  - Pain [None]
  - Tachycardia [None]
  - Agitation [None]
  - Dyspnoea [None]
  - Cough [None]
  - Dizziness [None]
  - Oedema [None]
  - Fall [None]
  - Tachypnoea [None]
  - Confusional state [None]
  - Malaise [None]

NARRATIVE: CASE EVENT DATE: 20201108
